FAERS Safety Report 13574527 (Version 3)
Quarter: 2017Q2

REPORT INFORMATION
  Report Type: Report from Study
  Country: US (occurrence: US)
  Receive Date: 20170523
  Receipt Date: 20170613
  Transmission Date: 20170830
  Serious: Yes (Death, Life-Threatening, Hospitalization)
  Sender: FDA-Public Use
  Company Number: US-BAYER-2017-054284

PATIENT
  Age: 59 Year
  Sex: Male
  Weight: 124.72 kg

DRUGS (8)
  1. REMODULIN [Concomitant]
     Active Substance: TREPROSTINIL
     Dosage: UNK
     Route: 042
     Dates: start: 2017
  2. ADEMPAS [Suspect]
     Active Substance: RIOCIGUAT
     Indication: PULMONARY ARTERIAL HYPERTENSION
     Dosage: 1.5 MG, TID
     Route: 048
  3. ADEMPAS [Suspect]
     Active Substance: RIOCIGUAT
     Indication: PULMONARY ARTERIAL HYPERTENSION
     Dosage: UNK
     Dates: start: 20170220
  4. LETAIRIS [Concomitant]
     Active Substance: AMBRISENTAN
     Dosage: UNK
  5. ADEMPAS [Suspect]
     Active Substance: RIOCIGUAT
     Indication: PULMONARY ARTERIAL HYPERTENSION
     Dosage: 2 MG, TID
     Route: 048
  6. ADEMPAS [Suspect]
     Active Substance: RIOCIGUAT
     Indication: PULMONARY ARTERIAL HYPERTENSION
     Dosage: 1 MG, TID
     Route: 048
  7. ORENITRAM [Suspect]
     Active Substance: TREPROSTINIL
     Dosage: UNK
  8. ORENITRAM [Suspect]
     Active Substance: TREPROSTINIL
     Dosage: UNK
     Dates: end: 2017

REACTIONS (21)
  - Nasal congestion [Unknown]
  - Pain [None]
  - Mobility decreased [None]
  - Pain in extremity [None]
  - Fluid retention [Unknown]
  - Nasal congestion [None]
  - Adverse drug reaction [None]
  - Death [Fatal]
  - Hospitalisation [Unknown]
  - Pain [Unknown]
  - Oedema peripheral [Unknown]
  - Constipation [Unknown]
  - Insomnia [Unknown]
  - Apparent death [Unknown]
  - Nausea [Unknown]
  - Peripheral swelling [Unknown]
  - Fluid overload [Unknown]
  - Pain in extremity [Unknown]
  - Blood creatinine increased [Unknown]
  - Headache [Unknown]
  - Influenza [None]
